FAERS Safety Report 12621968 (Version 2)
Quarter: 2016Q3

REPORT INFORMATION
  Report Type: Report from Study
  Country: AR (occurrence: AR)
  Receive Date: 20160804
  Receipt Date: 20160906
  Transmission Date: 20161109
  Serious: Yes (Death, Life-Threatening, Hospitalization, Other)
  Sender: FDA-Public Use
  Company Number: AR-ABBVIE-16K-007-1692612-00

PATIENT
  Age: 64 Year
  Sex: Female
  Weight: 100 kg

DRUGS (1)
  1. HUMIRA [Suspect]
     Active Substance: ADALIMUMAB
     Indication: RHEUMATOID ARTHRITIS
     Route: 058
     Dates: start: 20160627, end: 20160725

REACTIONS (10)
  - Limb injury [Unknown]
  - Fall [Unknown]
  - Limb injury [Recovering/Resolving]
  - Diverticulum [Not Recovered/Not Resolved]
  - Death [Fatal]
  - Tachycardia [Unknown]
  - Renal failure [Not Recovered/Not Resolved]
  - Cataract [Unknown]
  - Peritonitis [Not Recovered/Not Resolved]
  - Infection [Not Recovered/Not Resolved]

NARRATIVE: CASE EVENT DATE: 2016
